FAERS Safety Report 8286519-4 (Version None)
Quarter: 2012Q2

REPORT INFORMATION
  Report Type: 
  Country: None (occurrence: None)
  Receive Date: 20120416
  Receipt Date: 20120409
  Transmission Date: 20120825
  Serious: Yes (Hospitalization, Other)
  Sender: FDA-Public Use
  Company Number: JP-PFIZER INC-2012087863

PATIENT
  Age: 38 Year
  Sex: Male

DRUGS (1)
  1. ZITHROMAX [Suspect]
     Dosage: 2 DF, UNK
     Route: 048
     Dates: start: 20120407

REACTIONS (2)
  - NAUSEA [None]
  - EPILEPSY [None]
